FAERS Safety Report 7251547-4 (Version None)
Quarter: 2011Q1

REPORT INFORMATION
  Report Type: 
  Country: None (occurrence: None)
  Receive Date: 20110128
  Receipt Date: 20110121
  Transmission Date: 20110831
  Serious: Yes (Other)
  Sender: FDA-Public Use
  Company Number: CHPA2011CA01414

PATIENT

DRUGS (1)
  1. MAALOX UNKNOWN [Suspect]
     Route: 048

REACTIONS (2)
  - ANAPHYLACTIC SHOCK [None]
  - BRONCHOSPASM [None]
